FAERS Safety Report 21272916 (Version 1)
Quarter: 2022Q3

REPORT INFORMATION
  Report Type: Spontaneous
  Country: US (occurrence: US)
  Receive Date: 20220831
  Receipt Date: 20220831
  Transmission Date: 20221027
  Serious: No
  Sender: FDA-Public Use
  Company Number: US-drreddys-SPO/USA/22/0153470

PATIENT
  Age: 34 Year
  Sex: Male

DRUGS (1)
  1. ZENATANE [Suspect]
     Active Substance: ISOTRETINOIN
     Indication: Acne
     Dosage: RMA ISSUE DATE: 07 MARCH 2022 12:21:10 PM, 08 APRIL 2022 02:45:08 PM, 10 MAY 2022 11:57:28 AM, 21 JU

REACTIONS (1)
  - Treatment noncompliance [Unknown]
